FAERS Safety Report 24373932 (Version 1)
Quarter: 2024Q3

REPORT INFORMATION
  Report Type: Spontaneous
  Country: US (occurrence: GB)
  Receive Date: 20240927
  Receipt Date: 20240927
  Transmission Date: 20241017
  Serious: No
  Sender: VIVUS
  Company Number: US-VIVUS LLC-2024V1000236

PATIENT
  Age: 49 Year
  Sex: Female

DRUGS (1)
  1. QSYMIA [Suspect]
     Active Substance: PHENTERMINE HYDROCHLORIDE\TOPIRAMATE
     Indication: Product used for unknown indication
     Route: 048

REACTIONS (1)
  - Upper respiratory tract infection [Unknown]

NARRATIVE: CASE EVENT DATE: 20240228
